FAERS Safety Report 14364767 (Version 1)
Quarter: 2018Q1

REPORT INFORMATION
  Report Type: Spontaneous
  Country: US (occurrence: US)
  Receive Date: 20180107
  Receipt Date: 20180107
  Transmission Date: 20180509
  Serious: Yes (Disabling)
  Sender: FDA-Public Use
  Company Number: None

PATIENT
  Sex: Female
  Weight: 56.7 kg

DRUGS (1)
  1. GENERIC SIMVASTATIN 54458-0934-16 [Suspect]
     Active Substance: SIMVASTATIN
     Indication: LOW DENSITY LIPOPROTEIN INCREASED
     Route: 048
     Dates: end: 20171216

REACTIONS (5)
  - Neuropathy peripheral [None]
  - Arterial occlusive disease [None]
  - Cognitive disorder [None]
  - Dizziness [None]
  - Feeling drunk [None]
